FAERS Safety Report 20761086 (Version 1)
Quarter: 2022Q2

REPORT INFORMATION
  Report Type: Spontaneous
  Country: GB (occurrence: GB)
  Receive Date: 20220428
  Receipt Date: 20220428
  Transmission Date: 20220720
  Serious: Yes (Other)
  Sender: FDA-Public Use
  Company Number: None

PATIENT

DRUGS (9)
  1. TOLVAPTAN [Suspect]
     Active Substance: TOLVAPTAN
     Indication: Congenital cystic kidney disease
     Dosage: 45 MILLIGRAM
     Route: 048
     Dates: start: 20170628
  2. TOLVAPTAN [Suspect]
     Active Substance: TOLVAPTAN
     Dosage: 15 MILLIGRAM
     Route: 048
     Dates: start: 20170628
  3. DILTIAZEM [Concomitant]
     Active Substance: DILTIAZEM
     Indication: Product used for unknown indication
     Dosage: 120 MG, QD
     Route: 048
     Dates: start: 20170731, end: 20171005
  4. DILTIAZEM [Concomitant]
     Active Substance: DILTIAZEM
     Dosage: 150 MG, QD
     Route: 048
     Dates: start: 20171005, end: 20171120
  5. DILTIAZEM [Concomitant]
     Active Substance: DILTIAZEM
     Dosage: 240 MG, QD
     Route: 048
     Dates: start: 20171120, end: 20180806
  6. LOSARTAN [Concomitant]
     Active Substance: LOSARTAN
     Indication: Product used for unknown indication
     Dosage: 100 MG, QD
     Route: 048
     Dates: start: 20180702, end: 20180831
  7. LOSARTAN [Concomitant]
     Active Substance: LOSARTAN
     Dosage: 100 MG, QD
     Route: 048
     Dates: start: 20170130, end: 20180426
  8. LOSARTAN [Concomitant]
     Active Substance: LOSARTAN
     Dosage: 150 MG, QD
     Route: 048
     Dates: start: 20180901
  9. LOSARTAN [Concomitant]
     Active Substance: LOSARTAN
     Dosage: 150 MG, QD
     Route: 048
     Dates: start: 20180426, end: 20180702

REACTIONS (1)
  - Renal impairment [Recovered/Resolved]

NARRATIVE: CASE EVENT DATE: 20170822
